FAERS Safety Report 6528026-2 (Version None)
Quarter: 2010Q1

REPORT INFORMATION
  Report Type: 
  Country: None (occurrence: None)
  Receive Date: 20100106
  Receipt Date: 20091222
  Transmission Date: 20100710
  Serious: Yes (Hospitalization)
  Sender: FDA-Public Use
  Company Number: JP-BRISTOL-MYERS SQUIBB COMPANY-14528392

PATIENT
  Age: 31 Year
  Sex: Male

DRUGS (5)
  1. STOCRIN CAPS 200 MG [Suspect]
     Indication: HIV INFECTION
     Route: 048
     Dates: start: 20050425, end: 20080713
  2. TRUVADA [Suspect]
     Indication: HIV INFECTION
     Dosage: FORMULATION : TABS
     Route: 048
     Dates: start: 20050524
  3. PARIET [Concomitant]
     Indication: GASTRITIS
     Route: 048
     Dates: end: 20080323
  4. KOGENATE [Concomitant]
     Indication: HAEMOPHILIA
     Dosage: 1 DOSAGE FORM=1000 MILLION UNIT; 1-3TIMES/MONTH;
     Route: 042
  5. OCTOCOG ALPHA [Concomitant]

REACTIONS (2)
  - ARTHRITIS BACTERIAL [None]
  - LIVER FUNCTION TEST ABNORMAL [None]
